FAERS Safety Report 7998591-7 (Version None)
Quarter: 2011Q4

REPORT INFORMATION
  Report Type: 
  Country: None (occurrence: None)
  Receive Date: 20111221
  Receipt Date: 20111214
  Transmission Date: 20120403
  Serious: Yes (Life-Threatening, Hospitalization, Disabling, Other)
  Sender: FDA-Public Use
  Company Number: US-ACTELION-A-US2011-58247

PATIENT

DRUGS (6)
  1. TRACLEER [Suspect]
     Indication: PULMONARY ARTERIAL HYPERTENSION
     Dosage: UNK
     Route: 048
     Dates: start: 20101202
  2. TYVASO [Concomitant]
  3. AMLODIPINE [Concomitant]
  4. REVATIO [Concomitant]
  5. MYCOPHENOLATE MOFETIL (CELLCEPT) [Concomitant]
  6. CALCIUM CHANNEL BLOCKERS [Concomitant]

REACTIONS (4)
  - GANGRENE [None]
  - LEG AMPUTATION [None]
  - ARTERIAL BYPASS OPERATION [None]
  - THROMBOSIS [None]
